FAERS Safety Report 17864486 (Version 7)
Quarter: 2020Q2

REPORT INFORMATION
  Report Type: Spontaneous
  Country: US (occurrence: US)
  Receive Date: 20200605
  Receipt Date: 20200628
  Transmission Date: 20200714
  Serious: No
  Sender: FDA-Public Use
  Company Number: US-AMGEN-USASP2020087311

PATIENT
  Age: 42 Year
  Sex: Female
  Weight: 70.39 kg

DRUGS (2)
  1. NEULASTA [Suspect]
     Active Substance: PEGFILGRASTIM
     Indication: NEUTROPENIA
     Dosage: 6 MILLIGRAM ^ONCE^
     Route: 058
  2. NEULASTA [Suspect]
     Active Substance: PEGFILGRASTIM
     Dosage: 6 MILLIGRAM ^ONCE^
     Route: 058

REACTIONS (2)
  - Device adhesion issue [Unknown]
  - Application site pain [Unknown]

NARRATIVE: CASE EVENT DATE: 20200527
